FAERS Safety Report 7732482-1 (Version None)
Quarter: 2011Q3

REPORT INFORMATION
  Report Type: 
  Country: None (occurrence: None)
  Receive Date: 20110906
  Receipt Date: 20110829
  Transmission Date: 20111222
  Serious: Yes (Hospitalization)
  Sender: FDA-Public Use
  Company Number: JP-B.I. PHARMACEUTICALS,INC./RIDGEFIELD-2011-BP-15320NB

PATIENT
  Age: 68 Year
  Sex: Male
  Weight: 57 kg

DRUGS (3)
  1. LANSOPRAZOLE [Concomitant]
     Indication: ULCER
     Dosage: 15 MG
     Route: 048
  2. SITAGLIPTIN PHOSPHATE [Concomitant]
     Dosage: 50 MG
     Route: 048
  3. PRADAXA [Suspect]
     Indication: ATRIAL FIBRILLATION
     Dosage: 220 MG
     Route: 048
     Dates: start: 20110416, end: 20110607

REACTIONS (1)
  - CEREBRAL INFARCTION [None]
